FAERS Safety Report 24140894 (Version 1)
Quarter: 2024Q3

REPORT INFORMATION
  Report Type: Spontaneous
  Country: IT (occurrence: IT)
  Receive Date: 20240726
  Receipt Date: 20240726
  Transmission Date: 20241017
  Serious: Yes (Other)
  Sender: EMD SERONO INC
  Company Number: IT-Merck Healthcare KGaA-2024039388

PATIENT
  Sex: Female

DRUGS (1)
  1. MAVENCLAD [Suspect]
     Active Substance: CLADRIBINE
     Indication: Multiple sclerosis
     Dosage: FIRST THERAPY

REACTIONS (4)
  - Premature separation of placenta [Recovered/Resolved]
  - Premature delivery [Recovered/Resolved]
  - Live birth [Recovered/Resolved]
  - Maternal exposure timing unspecified [Recovered/Resolved]
